FAERS Safety Report 8529769-1 (Version None)
Quarter: 2012Q3

REPORT INFORMATION
  Report Type: 
  Country: None (occurrence: None)
  Receive Date: 20120723
  Receipt Date: 20120717
  Transmission Date: 20120928
  Serious: Yes (Death)
  Sender: FDA-Public Use
  Company Number: JP-JNJFOC-20120519540

PATIENT
  Age: 53 Year
  Sex: Female

DRUGS (2)
  1. RISPERDAL [Suspect]
     Indication: PRODUCT USED FOR UNKNOWN INDICATION
     Dosage: 82 TABLETS OF 1 MG TABLET
     Route: 048
     Dates: start: 20120108, end: 20120108
  2. ALCOHOL [Suspect]
     Indication: PRODUCT USED FOR UNKNOWN INDICATION
     Route: 065

REACTIONS (3)
  - INTENTIONAL OVERDOSE [None]
  - ARRHYTHMIA [None]
  - TOXICITY TO VARIOUS AGENTS [None]
